FAERS Safety Report 10648767 (Version 1)
Quarter: 2014Q4

REPORT INFORMATION
  Report Type: Spontaneous
  Country: US (occurrence: None)
  Receive Date: 20141211
  Receipt Date: 20141211
  Transmission Date: 20150529
  Serious: No
  Sender: FDA-Public Use
  Company Number: None

PATIENT
  Age: 56 Year
  Sex: Male

DRUGS (2)
  1. SOVALDI [Suspect]
     Active Substance: SOFOSBUVIR
     Indication: CHRONIC HEPATITIS C
     Route: 048
     Dates: start: 20140828
  2. RIBAVARIN [Suspect]
     Active Substance: RIBAVIRIN
     Dosage: 600MG QAM?400MG QHS?PO
     Route: 048

REACTIONS (3)
  - Arthralgia [None]
  - Oral herpes [None]
  - Dry skin [None]
